FAERS Safety Report 9341667 (Version 2)
Quarter: 2013Q3

REPORT INFORMATION
  Report Type: Spontaneous
  Country: US (occurrence: US)
  Receive Date: 20130611
  Receipt Date: 20130724
  Transmission Date: 20140515
  Serious: No
  Sender: FDA-Public Use
  Company Number: US-PFIZER INC-2013172664

PATIENT
  Age: 70 Year
  Sex: Female
  Weight: 102 kg

DRUGS (7)
  1. TIKOSYN [Suspect]
     Dosage: 0.5 MG, 2X/DAY
     Dates: start: 201212
  2. ATENOLOL [Concomitant]
     Indication: HYPERTENSION
     Dosage: 100 MG, 1X/DAY
  3. SPIRONOLACTONE [Concomitant]
     Indication: HYPERTENSION
     Dosage: 25 MG, 1X/DAY
  4. KLOR-CON M20 [Concomitant]
     Indication: BLOOD POTASSIUM DECREASED
     Dosage: 2 DF, 2X/DAY
  5. MAGNESIUM [Concomitant]
     Dosage: 400 MG, 2X/DAY
  6. FUROSEMIDE [Concomitant]
     Dosage: (40MG ON MON, WED, FRIDAY AND 20MG FOR THE REST OF THE WEEK), 1X/DAY
  7. WARFARIN [Concomitant]
     Indication: ANTICOAGULANT THERAPY
     Dosage: (ONE AND HALF TABLET OF 3MG ON MONDAY AND FRIDAY AND 3MG FOR THE REST OF THE WEEK ), 1X/DAY

REACTIONS (3)
  - Dyspnoea [Unknown]
  - Chest discomfort [Unknown]
  - Malaise [Unknown]
